FAERS Safety Report 9671443 (Version 3)
Quarter: 2013Q4

REPORT INFORMATION
  Report Type: Spontaneous
  Country: JP (occurrence: JP)
  Receive Date: 20131106
  Receipt Date: 20131125
  Transmission Date: 20140711
  Serious: Yes (Other)
  Sender: FDA-Public Use
  Company Number: PHHY2013JP123372

PATIENT
  Age: 29 Year
  Sex: Female

DRUGS (5)
  1. TEGRETOL [Suspect]
     Indication: BIPOLAR I DISORDER
     Dosage: 600 MG, DAILY
     Route: 048
  2. LIMAS [Suspect]
     Dosage: 600 MG, DAILY
     Route: 048
  3. DEPAKENE [Suspect]
     Dosage: 1000 MG, DAILY
     Route: 048
  4. CONTOMIN [Concomitant]
     Dosage: UNK UKN, UNK
     Route: 048
  5. LORAMET [Concomitant]
     Dosage: UNK UKN, UNK
     Route: 048

REACTIONS (3)
  - Amylase increased [Recovered/Resolved]
  - Abdominal distension [Recovered/Resolved]
  - Salivary hypersecretion [Recovered/Resolved]
